FAERS Safety Report 4716996-4 (Version None)
Quarter: 2005Q3

REPORT INFORMATION
  Report Type: 
  Country: None (occurrence: None)
  Receive Date: 20050719
  Receipt Date: 20050711
  Transmission Date: 20060218
  Serious: Yes (Hospitalization)
  Sender: FDA-Public Use
  Company Number: US-ROCHE-410558

PATIENT
  Age: 47 Year
  Sex: Female

DRUGS (3)
  1. PEGASYS [Suspect]
     Dosage: ROUTE REPORTED AS INJ.
     Route: 050
     Dates: start: 20040305, end: 20050121
  2. RIBAVIRIN [Concomitant]
     Route: 048
     Dates: start: 20040305, end: 20050121
  3. INSULIN [Concomitant]
     Dosage: ROUTE REPORTED AS INJ.
     Route: 050

REACTIONS (2)
  - HEPATIC CIRRHOSIS [None]
  - RENAL FAILURE [None]
